FAERS Safety Report 5012902-6 (Version None)
Quarter: 2006Q2

REPORT INFORMATION
  Report Type: 
  Country: None (occurrence: None)
  Receive Date: 20060525
  Receipt Date: 20060525
  Transmission Date: 20061013
  Serious: Yes (Other)
  Sender: FDA-Public Use
  Company Number: None

PATIENT
  Sex: Female

DRUGS (3)
  1. DURAGESIC-100 [Suspect]
     Indication: BACK PAIN
     Dosage: 50 MCG ONE Q 60H
     Dates: start: 20051026, end: 20060501
  2. DURAGESIC-100 [Suspect]
     Indication: CHEST PAIN
     Dosage: 50 MCG ONE Q 60H
     Dates: start: 20051026, end: 20060501
  3. DURAGESIC-100 [Suspect]
     Indication: MYOFASCIAL PAIN SYNDROME
     Dosage: 50 MCG ONE Q 60H
     Dates: start: 20051026, end: 20060501

REACTIONS (3)
  - CIRCUMSTANCE OR INFORMATION CAPABLE OF LEADING TO MEDICATION ERROR [None]
  - INADEQUATE ANALGESIA [None]
  - INCORRECT DOSE ADMINISTERED [None]
